FAERS Safety Report 24197593 (Version 1)
Quarter: 2024Q3

REPORT INFORMATION
  Report Type: Spontaneous
  Country: US (occurrence: US)
  Receive Date: 20240811
  Receipt Date: 20240811
  Transmission Date: 20241016
  Serious: Yes (Other)
  Sender: JOHNSON AND JOHNSON
  Company Number: US-JNJFOC-20240800112

PATIENT
  Sex: Female

DRUGS (4)
  1. JANSSEN COVID-19 VACCINE [Suspect]
     Active Substance: AD26.COV2.S
     Indication: COVID-19 prophylaxis
     Dosage: DOSE SERIES 1
     Route: 030
  2. SYMTUZA [Suspect]
     Active Substance: COBICISTAT\DARUNAVIR\EMTRICITABINE\TENOFOVIR ALAFENAMIDE
     Indication: HIV infection
     Route: 048
     Dates: start: 2018
  3. HYALURONIC ACID [Suspect]
     Active Substance: HYALURONIC ACID
  4. HYALURONIC ACID [Suspect]
     Active Substance: HYALURONIC ACID

REACTIONS (8)
  - Myocardial infarction [Unknown]
  - Stenosis [Unknown]
  - Tendon disorder [Unknown]
  - General physical condition abnormal [Unknown]
  - Rash [Recovered/Resolved]
  - Eye disorder [Unknown]
  - Lipoatrophy [Unknown]
  - Fat tissue decreased [Unknown]
